FAERS Safety Report 7235787-6 (Version None)
Quarter: 2011Q1

REPORT INFORMATION
  Report Type: 
  Country: None (occurrence: None)
  Receive Date: 20110120
  Receipt Date: 20110111
  Transmission Date: 20110831
  Serious: Yes (Hospitalization, Disabling, Other)
  Sender: FDA-Public Use
  Company Number: US-ASTRAZENECA-2010SE59180

PATIENT
  Age: 52 Year
  Sex: Male
  Weight: 78 kg

DRUGS (7)
  1. CRESTOR [Suspect]
     Route: 048
     Dates: start: 20090609, end: 20100910
  2. CRESTOR [Suspect]
     Indication: HYPERLIPIDAEMIA
     Route: 048
     Dates: start: 20081204, end: 20090609
  3. AVODART [Concomitant]
     Indication: BENIGN PROSTATIC HYPERPLASIA
     Route: 048
  4. PERCODAN-DEMI [Concomitant]
     Indication: PAIN
     Route: 048
  5. LOTENSION [Concomitant]
     Indication: HYPERTENSION
     Route: 048
  6. SOMA [Concomitant]
     Indication: MUSCLE RELAXANT THERAPY
     Dosage: DAILY
     Route: 048
  7. CYMBALTA [Concomitant]
     Indication: DEPRESSION
     Route: 048

REACTIONS (9)
  - MUSCLE CONTRACTIONS INVOLUNTARY [None]
  - AMYOTROPHIC LATERAL SCLEROSIS [None]
  - RESPIRATORY FAILURE [None]
  - MUSCULAR WEAKNESS [None]
  - MUSCLE SPASTICITY [None]
  - OEDEMA PERIPHERAL [None]
  - MUSCULOSKELETAL CHEST PAIN [None]
  - FATIGUE [None]
  - GASTROOESOPHAGEAL REFLUX DISEASE [None]
